FAERS Safety Report 8549016-4 (Version None)
Quarter: 2012Q3

REPORT INFORMATION
  Report Type: 
  Country: None (occurrence: None)
  Receive Date: 20120730
  Receipt Date: 20120719
  Transmission Date: 20120928
  Serious: Yes (Other)
  Sender: FDA-Public Use
  Company Number: JP-VERTEX PHARMACEUTICALS INC.-AE-2012-010834

PATIENT
  Age: 40 Year
  Sex: Male

DRUGS (5)
  1. REBETOL [Concomitant]
     Route: 048
     Dates: start: 20120518, end: 20120528
  2. TELAVIC (TELAPREVIR) [Suspect]
     Indication: HEPATITIS C
     Route: 048
     Dates: start: 20120508, end: 20120711
  3. REBETOL [Concomitant]
     Route: 048
     Dates: start: 20120529, end: 20120703
  4. REBETOL [Concomitant]
     Route: 048
     Dates: start: 20120508, end: 20120517
  5. PEGINTERFERON ALFA-2B [Concomitant]
     Route: 058
     Dates: start: 20120508, end: 20120703

REACTIONS (3)
  - ANAEMIA [None]
  - WHITE BLOOD CELL COUNT DECREASED [None]
  - BLOOD CREATININE INCREASED [None]
